FAERS Safety Report 15165156 (Version 1)
Quarter: 2018Q3

REPORT INFORMATION
  Report Type: Spontaneous
  Country: ES (occurrence: ES)
  Receive Date: 20180719
  Receipt Date: 20180719
  Transmission Date: 20181010
  Serious: Yes (Life-Threatening, Hospitalization)
  Sender: FDA-Public Use
  Company Number: ES-MYLANLABS-2018M1051236

PATIENT
  Age: 71 Year
  Sex: Male

DRUGS (3)
  1. SOTALOL. [Interacting]
     Active Substance: SOTALOL
     Indication: SUPRAVENTRICULAR TACHYCARDIA
     Dosage: 80 MG, BID (EVERY 12 HOUR)
     Route: 048
     Dates: start: 20171125, end: 20171128
  2. LEVOFLOXACIN. [Suspect]
     Active Substance: LEVOFLOXACIN
     Indication: RESPIRATORY TRACT INFECTION
     Dosage: 500 MG, QD (EVERY 24 HOUR)
     Route: 048
     Dates: start: 20171125, end: 20171128
  3. AMIODARONA                         /00133101/ [Interacting]
     Active Substance: AMIODARONE
     Indication: ATRIAL FIBRILLATION
     Dosage: 100 MG, QD (EVERY 24 HOUR)
     Route: 048
     Dates: start: 20170908, end: 20171128

REACTIONS (2)
  - Drug interaction [Unknown]
  - Ventricular tachycardia [Recovered/Resolved]

NARRATIVE: CASE EVENT DATE: 20171128
